FAERS Safety Report 14340005 (Version 1)
Quarter: 2017Q4

REPORT INFORMATION
  Report Type: Spontaneous
  Country: NL (occurrence: NL)
  Receive Date: 20171231
  Receipt Date: 20171231
  Transmission Date: 20180321
  Serious: Yes (Other)
  Sender: FDA-Public Use
  Company Number: NL-TEVA-2017-NL-839378

PATIENT

DRUGS (1)
  1. PAROXETINE PCH [Suspect]
     Active Substance: PAROXETINE
     Dosage: USED IT APPROXIMATELY 7 YEARS AGO

REACTIONS (7)
  - Hypertension [Unknown]
  - Cardiac failure [Unknown]
  - Heart rate increased [Unknown]
  - Fall [Unknown]
  - Cardiac disorder [Unknown]
  - Blindness unilateral [Unknown]
  - Blood viscosity increased [Unknown]
